FAERS Safety Report 15503363 (Version 1)
Quarter: 2018Q4

REPORT INFORMATION
  Report Type: Spontaneous
  Country: US (occurrence: US)
  Receive Date: 20181009
  Receipt Date: 20181009
  Transmission Date: 20190205
  Serious: Yes (Life-Threatening, Disabling, Other)
  Sender: FDA-Public Use
  Company Number: None

PATIENT
  Age: 41 Year
  Sex: Male
  Weight: 83.01 kg

DRUGS (4)
  1. METFORMIN [Concomitant]
     Active Substance: METFORMIN HYDROCHLORIDE
  2. NORCO [Concomitant]
     Active Substance: ACETAMINOPHEN\HYDROCODONE BITARTRATE
  3. MULTIHANCE [Suspect]
     Active Substance: GADOBENATE DIMEGLUMINE
  4. EYE DROPS [Concomitant]
     Active Substance: UNSPECIFIED INGREDIENT

REACTIONS (20)
  - Ear pain [None]
  - Alopecia [None]
  - Arthralgia [None]
  - Skin fibrosis [None]
  - Tinnitus [None]
  - Burning sensation [None]
  - Wound [None]
  - Blister [None]
  - Urticaria [None]
  - Head discomfort [None]
  - Muscle spasms [None]
  - Nephrogenic systemic fibrosis [None]
  - Dysphagia [None]
  - Photophobia [None]
  - Myalgia [None]
  - Bone pain [None]
  - Eye irritation [None]
  - Rash generalised [None]
  - Drug clearance decreased [None]
  - Suicidal ideation [None]

NARRATIVE: CASE EVENT DATE: 20180305
